FAERS Safety Report 7693173-9 (Version None)
Quarter: 2011Q3

REPORT INFORMATION
  Report Type: 
  Country: None (occurrence: None)
  Receive Date: 20110816
  Receipt Date: 20110803
  Transmission Date: 20111222
  Serious: Yes (Death, Disabling)
  Sender: FDA-Public Use
  Company Number: JP-2011-11278

PATIENT
  Age: 75 Year
  Sex: Male

DRUGS (2)
  1. SAMSCA [Suspect]
     Dosage: ORAL
     Route: 048
     Dates: start: 20110717
  2. DIURETICS [Concomitant]

REACTIONS (1)
  - RENAL FAILURE ACUTE [None]
